FAERS Safety Report 17862347 (Version 1)
Quarter: 2020Q2

REPORT INFORMATION
  Report Type: Spontaneous
  Country: JP (occurrence: JP)
  Receive Date: 20200604
  Receipt Date: 20200604
  Transmission Date: 20200714
  Serious: Yes (Other)
  Sender: FDA-Public Use
  Company Number: JP-GILEAD-2020-0469094

PATIENT
  Age: 64 Year
  Sex: Female

DRUGS (4)
  1. TADALAFIL. [Concomitant]
     Active Substance: TADALAFIL
  2. AMBRISENTAN [Suspect]
     Active Substance: AMBRISENTAN
     Indication: PULMONARY HYPERTENSION
     Route: 065
  3. CYCLOPHOSPHAMIDE. [Concomitant]
     Active Substance: CYCLOPHOSPHAMIDE
  4. METHYLPREDNISOLONE. [Concomitant]
     Active Substance: METHYLPREDNISOLONE

REACTIONS (3)
  - Oxygen saturation abnormal [Recovering/Resolving]
  - Cardiac failure [Unknown]
  - Productive cough [Unknown]
